FAERS Safety Report 5902289-6 (Version None)
Quarter: 2008Q3

REPORT INFORMATION
  Report Type: 
  Country: None (occurrence: None)
  Receive Date: 20080929
  Receipt Date: 20080821
  Transmission Date: 20090109
  Serious: No
  Sender: FDA-Public Use
  Company Number: US-BAUSCH-2008BL003643

PATIENT
  Age: 40 Year
  Sex: Female

DRUGS (12)
  1. ALAWAY [Suspect]
     Indication: EYE ALLERGY
     Route: 047
     Dates: start: 20080816, end: 20080816
  2. SYSTANE [Concomitant]
     Indication: EYE IRRITATION
     Route: 047
  3. FLAXSEED OIL [Concomitant]
     Indication: VITAMIN SUPPLEMENTATION
     Route: 048
  4. FISH OIL [Concomitant]
     Indication: VITAMIN SUPPLEMENTATION
     Route: 048
  5. ST. JOHN'S WORT [Concomitant]
     Indication: VITAMIN SUPPLEMENTATION
     Route: 048
  6. CALCIUM [Concomitant]
     Indication: MINERAL SUPPLEMENTATION
     Route: 048
  7. MAGNESIUM SULFATE [Concomitant]
     Indication: MINERAL SUPPLEMENTATION
     Route: 048
  8. GLUCO-FLEX [Concomitant]
     Indication: VITAMIN SUPPLEMENTATION
     Route: 048
  9. LYRICA [Concomitant]
     Route: 048
  10. PROPACET 100 [Concomitant]
     Indication: PAIN
     Route: 048
  11. BARLEY GRASS [Concomitant]
     Indication: VITAMIN SUPPLEMENTATION
     Route: 048
  12. BEE POLLEN [Concomitant]
     Indication: VITAMIN SUPPLEMENTATION
     Route: 048

REACTIONS (2)
  - EYE IRRITATION [None]
  - HYPERSENSITIVITY [None]
